FAERS Safety Report 5719034-X (Version None)
Quarter: 2008Q2

REPORT INFORMATION
  Report Type: 
  Country: None (occurrence: None)
  Receive Date: 20080423
  Receipt Date: 20080409
  Transmission Date: 20081010
  Serious: Yes (Death, Hospitalization, Other)
  Sender: FDA-Public Use
  Company Number: 2008-00830

PATIENT
  Sex: Female

DRUGS (1)
  1. VELCADE [Suspect]
     Indication: MULTIPLE MYELOMA
     Dates: start: 20070101

REACTIONS (15)
  - BACK PAIN [None]
  - BONE NEOPLASM [None]
  - CARDIAC DISORDER [None]
  - DISEASE PROGRESSION [None]
  - DYSPNOEA [None]
  - GENERAL PHYSICAL HEALTH DETERIORATION [None]
  - NEURALGIA [None]
  - NEUTROPHIL COUNT DECREASED [None]
  - PARESIS [None]
  - PLEURAL EFFUSION [None]
  - PSEUDOMONAL SEPSIS [None]
  - RESPIRATORY DISORDER [None]
  - SEPSIS [None]
  - SPINAL CORD COMPRESSION [None]
  - THROMBOCYTOPENIA [None]
